FAERS Safety Report 9791556 (Version 1)
Quarter: 2014Q1

REPORT INFORMATION
  Report Type: Report from Study
  Country: CA (occurrence: CA)
  Receive Date: 20140101
  Receipt Date: 20140101
  Transmission Date: 20141002
  Serious: Yes (Hospitalization)
  Sender: FDA-Public Use
  Company Number: PHHY2012CA129984

PATIENT
  Sex: Male

DRUGS (1)
  1. EXELON PATCH [Suspect]
     Indication: DEMENTIA ALZHEIMER^S TYPE
     Dosage: UNK UKN, UNK
     Route: 062
     Dates: start: 20120502

REACTIONS (5)
  - General physical health deterioration [Unknown]
  - Judgement impaired [Unknown]
  - Disturbance in attention [Unknown]
  - Hip fracture [Unknown]
  - Hallucination [Unknown]
